FAERS Safety Report 15965873 (Version 2)
Quarter: 2019Q1

REPORT INFORMATION
  Report Type: Spontaneous
  Country: US (occurrence: US)
  Receive Date: 20190215
  Receipt Date: 20190219
  Transmission Date: 20190418
  Serious: No
  Sender: FDA-Public Use
  Company Number: US-PFIZER INC-2019060301

PATIENT
  Age: 69 Year
  Sex: Female

DRUGS (1)
  1. COLESTID [Suspect]
     Active Substance: COLESTIPOL HYDROCHLORIDE
     Dosage: 1 G, 2X/DAY
     Route: 048

REACTIONS (2)
  - Oesophageal disorder [Unknown]
  - Dysphagia [Unknown]
